FAERS Safety Report 23630228 (Version 3)
Quarter: 2024Q4

REPORT INFORMATION
  Report Type: Report from Study
  Country: US (occurrence: US)
  Receive Date: 20240314
  Receipt Date: 20241218
  Transmission Date: 20250115
  Serious: Yes (Life-Threatening, Other)
  Sender: SANOFI AVENTIS
  Company Number: US-SA-SAC20240124001135

PATIENT
  Age: 68 Year
  Sex: Female

DRUGS (1)
  1. ELIGLUSTAT [Suspect]
     Active Substance: ELIGLUSTAT
     Indication: Gaucher^s disease
     Dosage: 84 MG, BID
     Route: 048
     Dates: start: 20240115, end: 20240614

REACTIONS (27)
  - Thrombocytopenia [Unknown]
  - Platelet count decreased [Unknown]
  - Haemorrhage [Unknown]
  - Haematocrit decreased [Unknown]
  - Osteonecrosis [Unknown]
  - Anaemia [Unknown]
  - Haemoglobin decreased [Unknown]
  - Hepatomegaly [Unknown]
  - Splenomegaly [Unknown]
  - Osteopenia [Unknown]
  - Osteoporosis [Unknown]
  - Bone pain [Unknown]
  - Brain fog [Unknown]
  - Pain of skin [Unknown]
  - Ageusia [Unknown]
  - Pruritus [Unknown]
  - Skin exfoliation [Unknown]
  - Retching [Unknown]
  - Decreased appetite [Unknown]
  - Secretion discharge [Unknown]
  - Loss of personal independence in daily activities [Unknown]
  - Paraesthesia [Unknown]
  - Gastrooesophageal reflux disease [Recovered/Resolved]
  - Nausea [Unknown]
  - Diarrhoea [Recovered/Resolved]
  - Dyspepsia [Unknown]
  - Fatigue [Unknown]

NARRATIVE: CASE EVENT DATE: 20240101
